FAERS Safety Report 4521636-3 (Version None)
Quarter: 2004Q4

REPORT INFORMATION
  Report Type: 
  Country: None (occurrence: None)
  Receive Date: 20041206
  Receipt Date: 20041118
  Transmission Date: 20050328
  Serious: Yes (Death, Hospitalization)
  Sender: FDA-Public Use
  Company Number: L04-USA-07403-03

PATIENT
  Age: 39 Year
  Sex: Male

DRUGS (5)
  1. CITALOPRAM [Suspect]
  2. CARBON MONOXIDE [Suspect]
  3. DIAZEPAM [Suspect]
  4. DIPHENHYDRAMINE [Suspect]
  5. VODKA (ALCOHOL) [Suspect]

REACTIONS (15)
  - ACIDOSIS [None]
  - ACUTE MYOCARDIAL INFARCTION [None]
  - ACUTE RESPIRATORY DISTRESS SYNDROME [None]
  - ANOXIC ENCEPHALOPATHY [None]
  - BODY TEMPERATURE INCREASED [None]
  - BOWEL SOUNDS ABNORMAL [None]
  - CARBON MONOXIDE POISONING [None]
  - COMA [None]
  - COMPLETED SUICIDE [None]
  - HEART RATE ABNORMAL [None]
  - HEART RATE INCREASED [None]
  - LABILE BLOOD PRESSURE [None]
  - MULTIPLE DRUG OVERDOSE [None]
  - RENAL FAILURE [None]
  - THERMAL BURN [None]
